FAERS Safety Report 6162265-8 (Version None)
Quarter: 2009Q2

REPORT INFORMATION
  Report Type: 
  Country: None (occurrence: None)
  Receive Date: 20090417
  Receipt Date: 20090406
  Transmission Date: 20091009
  Serious: Yes (Hospitalization)
  Sender: FDA-Public Use
  Company Number: 1-18030907

PATIENT
  Age: 4 Year
  Sex: Male

DRUGS (3)
  1. LAMOTRIGINE [Suspect]
     Indication: EPILEPSY
     Dosage: 25 MG 3X/DAY, ORAL
     Route: 048
  2. VALPROIC ACID [Suspect]
     Indication: EPILEPSY
     Dosage: 300 MG 3X/DAY, ORAL
     Route: 048
  3. CLOBAZAM [Suspect]
     Indication: EPILEPSY
     Dosage: 10 MG, 2X/DAY, ORAL
     Route: 048

REACTIONS (2)
  - DRUG EFFECT DECREASED [None]
  - STEVENS-JOHNSON SYNDROME [None]
